APPROVED DRUG PRODUCT: PROCHLORPERAZINE EDISYLATE
Active Ingredient: PROCHLORPERAZINE EDISYLATE
Strength: EQ 5MG BASE/ML
Dosage Form/Route: INJECTABLE;INJECTION
Application: A204860 | Product #001
Applicant: NEXUS PHARMACEUTICALS LLC
Approved: Feb 15, 2019 | RLD: No | RS: No | Type: DISCN